FAERS Safety Report 12870626 (Version 2)
Quarter: 2017Q1

REPORT INFORMATION
  Report Type: Spontaneous
  Country: US (occurrence: US)
  Receive Date: 20161021
  Receipt Date: 20170119
  Transmission Date: 20170428
  Serious: Yes (Other)
  Sender: FDA-Public Use
  Company Number: US-PFIZER INC-2016485402

PATIENT
  Age: 65 Year
  Sex: Female
  Weight: 86.17 kg

DRUGS (1)
  1. FUROSEMIDE. [Suspect]
     Active Substance: FUROSEMIDE
     Indication: DIURETIC THERAPY
     Dosage: 20 MG, 1X/DAY (ONE IN THE MORNING)

REACTIONS (4)
  - Rheumatic heart disease [Unknown]
  - Peripheral swelling [Unknown]
  - Rheumatoid arthritis [Unknown]
  - Rheumatoid lung [Unknown]

NARRATIVE: CASE EVENT DATE: 2014
